FAERS Safety Report 10150621 (Version 2)
Quarter: 2014Q2

REPORT INFORMATION
  Report Type: Spontaneous
  Country: CA (occurrence: CA)
  Receive Date: 20140502
  Receipt Date: 20140530
  Transmission Date: 20141212
  Serious: Yes (Hospitalization)
  Sender: FDA-Public Use
  Company Number: CA-TAKEDA-2014TUS003434

PATIENT
  Age: 84 Year
  Sex: Female

DRUGS (8)
  1. DEXILANT [Suspect]
     Indication: GASTROOESOPHAGEAL REFLUX DISEASE
     Dosage: 60 MG, QD
     Route: 048
     Dates: start: 20131002, end: 20131016
  2. ADVAIR [Concomitant]
     Dosage: 25 MCG/125 MCG INH: 2 INHALATIONS 2X DAILY
     Route: 050
  3. CALCIUM [Concomitant]
     Dosage: 500 MG, BID
     Route: 048
  4. CELEBREX [Concomitant]
     Dosage: 200 MG DAILY
     Route: 048
  5. COVERSYL PLUS                      /01421201/ [Concomitant]
     Dosage: 4 MG/1.25 MG DAILY
     Route: 048
  6. OXAZEPAM [Concomitant]
     Dosage: 30 MG, HS
     Route: 048
  7. SPIRIVA [Concomitant]
     Dosage: 18 ?G, QD
     Route: 050
  8. VITALUX PLUS LUTEIN OMEGA 3 [Concomitant]
     Dosage: 2 DF, QD
     Route: 048

REACTIONS (4)
  - Bacterial infection [Not Recovered/Not Resolved]
  - Drug intolerance [Not Recovered/Not Resolved]
  - Dehydration [Not Recovered/Not Resolved]
  - Diarrhoea [Not Recovered/Not Resolved]
